FAERS Safety Report 5819776-1 (Version None)
Quarter: 2008Q3

REPORT INFORMATION
  Report Type: 
  Country: None (occurrence: None)
  Receive Date: 20080723
  Receipt Date: 20080711
  Transmission Date: 20090109
  Serious: Yes (Hospitalization, Other)
  Sender: FDA-Public Use
  Company Number: JP-PFIZER INC-2008059396

PATIENT
  Sex: Female
  Weight: 13 kg

DRUGS (9)
  1. GABAPENTIN [Suspect]
     Indication: EPILEPSY
     Route: 048
  2. TEGRETOL [Concomitant]
     Indication: EPILEPSY
     Route: 048
  3. PHENOBARBITAL TAB [Concomitant]
     Indication: EPILEPSY
     Route: 048
  4. NITRAZEPAM [Concomitant]
     Indication: EPILEPSY
     Route: 048
  5. FAMOTIDINE [Concomitant]
     Route: 048
  6. MUCOSOLVAN [Concomitant]
     Route: 048
  7. ONON [Concomitant]
     Route: 048
  8. LEVOTHYROXINE SODIUM [Concomitant]
     Route: 048
  9. TERNELIN [Concomitant]
     Indication: EPILEPSY
     Route: 048

REACTIONS (3)
  - ADENOIDECTOMY [None]
  - APNOEA [None]
  - RESPIRATORY DEPRESSION [None]
